FAERS Safety Report 5961503-1 (Version None)
Quarter: 2008Q4

REPORT INFORMATION
  Report Type: 
  Country: None (occurrence: None)
  Receive Date: 20081119
  Receipt Date: 20080929
  Transmission Date: 20090506
  Serious: Yes (Hospitalization)
  Sender: FDA-Public Use
  Company Number: 15651

PATIENT
  Age: 59 Year
  Sex: Female
  Weight: 88.4514 kg

DRUGS (6)
  1. MORPHINE SULFATE [Suspect]
     Indication: PAIN IN EXTREMITY
     Dosage: 60MG TID ORALLY
     Route: 048
     Dates: start: 20060101, end: 20080212
  2. LUNESTA [Concomitant]
  3. LEXAPRO [Concomitant]
  4. LEVOTHYROXINE SODIUM [Concomitant]
  5. VERAPAMIL [Concomitant]
  6. LYRICA [Concomitant]

REACTIONS (29)
  - ASCITES [None]
  - BACK PAIN [None]
  - CARDIAC ARREST [None]
  - CARDIAC FAILURE CONGESTIVE [None]
  - COMA [None]
  - CONVULSION [None]
  - DEPRESSION [None]
  - DIARRHOEA [None]
  - FIBROMYALGIA [None]
  - FUNGAEMIA [None]
  - GOITRE [None]
  - HEPATIC FAILURE [None]
  - HEPATIC STEATOSIS [None]
  - HYPOKALAEMIA [None]
  - HYPOTHYROIDISM [None]
  - LETHARGY [None]
  - MULTI-ORGAN FAILURE [None]
  - PNEUMONIA [None]
  - PNEUMONIA ASPIRATION [None]
  - PRODUCT QUALITY ISSUE [None]
  - PULMONARY THROMBOSIS [None]
  - RECTAL HAEMORRHAGE [None]
  - RENAL FAILURE ACUTE [None]
  - RESPIRATORY FAILURE [None]
  - RHABDOMYOLYSIS [None]
  - SEPTIC SHOCK [None]
  - SOMNOLENCE [None]
  - UNRESPONSIVE TO STIMULI [None]
  - VOMITING [None]
